FAERS Safety Report 9787120 (Version 2)
Quarter: 2013Q4

REPORT INFORMATION
  Report Type: Report from Study
  Country: BR (occurrence: BR)
  Receive Date: 20131228
  Receipt Date: 20131228
  Transmission Date: 20140711
  Serious: Yes (Other)
  Sender: FDA-Public Use
  Company Number: BR-ROCHE-1104772

PATIENT
  Sex: Female
  Weight: 50 kg

DRUGS (10)
  1. ACTEMRA [Suspect]
     Indication: RHEUMATOID ARTHRITIS
     Route: 042
     Dates: start: 20120726
  2. TRAMADOL [Concomitant]
     Route: 065
  3. PRELONE [Concomitant]
  4. CELEBRA [Concomitant]
     Route: 065
  5. OMEGA 3 [Concomitant]
  6. CYMBALTA [Concomitant]
  7. ULTRACET [Concomitant]
  8. LINSEED OIL [Concomitant]
  9. B-COMPLEX VITAMINS [Concomitant]
  10. OS-CAL [Concomitant]

REACTIONS (15)
  - Dementia Alzheimer^s type [Unknown]
  - Depression [Unknown]
  - Pneumonia [Unknown]
  - Pruritus [Not Recovered/Not Resolved]
  - Headache [Unknown]
  - Drug ineffective [Unknown]
  - Dizziness [Unknown]
  - Decreased appetite [Unknown]
  - Nausea [Unknown]
  - Feeding disorder [Unknown]
  - Memory impairment [Unknown]
  - Genital infection [Not Recovered/Not Resolved]
  - Pain [Unknown]
  - Asthenia [Unknown]
  - Weight decreased [Unknown]
